FAERS Safety Report 21920846 (Version 1)
Quarter: 2023Q1

REPORT INFORMATION
  Report Type: Report from Study
  Country: BR (occurrence: BR)
  Receive Date: 20230127
  Receipt Date: 20230127
  Transmission Date: 20230417
  Serious: Yes (Other)
  Sender: FDA-Public Use
  Company Number: BR-JNJFOC-20230140965

PATIENT
  Age: 6 Decade
  Sex: Female
  Weight: 67 kg

DRUGS (6)
  1. REMICADE [Suspect]
     Active Substance: INFLIXIMAB
     Indication: Crohn^s disease
     Route: 041
     Dates: start: 20130423
  2. INFLIXIMAB [Suspect]
     Active Substance: INFLIXIMAB
     Indication: Crohn^s disease
     Route: 065
     Dates: start: 202208
  3. TRAMADOL [Concomitant]
     Active Substance: TRAMADOL
  4. OMEPRAZOLE [Concomitant]
     Active Substance: OMEPRAZOLE
  5. ACETAMINOPHEN\CODEINE PHOSPHATE [Concomitant]
     Active Substance: ACETAMINOPHEN\CODEINE PHOSPHATE
  6. DUCOX [Concomitant]

REACTIONS (3)
  - Intestinal obstruction [Unknown]
  - COVID-19 [Unknown]
  - Synovitis [Unknown]

NARRATIVE: CASE EVENT DATE: 20220201
